FAERS Safety Report 15470307 (Version 1)
Quarter: 2018Q4

REPORT INFORMATION
  Report Type: Spontaneous
  Country: US (occurrence: US)
  Receive Date: 20181005
  Receipt Date: 20181005
  Transmission Date: 20190205
  Serious: Yes (Hospitalization)
  Sender: FDA-Public Use
  Company Number: US-009507513-1810USA000825

PATIENT
  Sex: Male

DRUGS (11)
  1. QVAR [Suspect]
     Active Substance: BECLOMETHASONE DIPROPIONATE
  2. PROAIR HFA [Suspect]
     Active Substance: ALBUTEROL SULFATE
  3. XOPENEX [Suspect]
     Active Substance: LEVALBUTEROL HYDROCHLORIDE
  4. ASMANEX [Suspect]
     Active Substance: MOMETASONE FUROATE
     Dosage: 220 MCG, TWO PUFFS, TWICE A DAY
     Dates: start: 2008, end: 201604
  5. XYZAL [Concomitant]
     Active Substance: LEVOCETIRIZINE DIHYDROCHLORIDE
     Indication: URTICARIA
  6. SINGULAIR [Suspect]
     Active Substance: MONTELUKAST SODIUM
     Indication: ASTHMA
     Dosage: UNK
     Route: 048
     Dates: start: 2003, end: 2003
  7. SINGULAIR [Suspect]
     Active Substance: MONTELUKAST SODIUM
     Dosage: UNK
     Route: 048
     Dates: start: 2003, end: 2003
  8. ASMANEX [Suspect]
     Active Substance: MOMETASONE FUROATE
     Dosage: 220 MCG, TWO PUFFS, TWICE A DAY
  9. XYZAL [Concomitant]
     Active Substance: LEVOCETIRIZINE DIHYDROCHLORIDE
     Indication: ANAPHYLACTIC REACTION
  10. ALBUTEROL SULFATE. [Suspect]
     Active Substance: ALBUTEROL SULFATE
  11. AEROSPAN [Suspect]
     Active Substance: FLUNISOLIDE

REACTIONS (7)
  - Drug ineffective [Recovered/Resolved]
  - Chest discomfort [Unknown]
  - Anxiety [Unknown]
  - Palpitations [Unknown]
  - Insurance issue [Unknown]
  - Abdominal pain upper [Recovered/Resolved]
  - Cholelithiasis [Unknown]

NARRATIVE: CASE EVENT DATE: 2003
